FAERS Safety Report 8008805-5 (Version None)
Quarter: 2011Q4

REPORT INFORMATION
  Report Type: 
  Country: None (occurrence: None)
  Receive Date: 20111221
  Receipt Date: 20111207
  Transmission Date: 20120403
  Serious: Yes (Hospitalization)
  Sender: FDA-Public Use
  Company Number: AMAG201100248

PATIENT
  Age: 29 Year
  Sex: Female

DRUGS (1)
  1. FERUMOXSIL [Suspect]
     Indication: CHOLANGIOGRAM
     Dosage: 200 ML, SINGLE, ORAL
     Route: 048
     Dates: start: 20111103, end: 20111103

REACTIONS (7)
  - URTICARIA [None]
  - RESPIRATORY TRACT OEDEMA [None]
  - LOCAL SWELLING [None]
  - THROAT IRRITATION [None]
  - ORAL PRURITUS [None]
  - HYPERSENSITIVITY [None]
  - SWELLING FACE [None]
